FAERS Safety Report 7880444-6 (Version None)
Quarter: 2011Q4

REPORT INFORMATION
  Report Type: 
  Country: None (occurrence: None)
  Receive Date: 20111101
  Receipt Date: 20111025
  Transmission Date: 20120403
  Serious: Yes (Hospitalization)
  Sender: FDA-Public Use
  Company Number: PHHY2011DE94119

PATIENT
  Sex: Female

DRUGS (1)
  1. GLEEVEC [Suspect]
     Indication: CHRONIC MYELOID LEUKAEMIA
     Dosage: 400 MG, DAILY
     Route: 048
     Dates: start: 20051201

REACTIONS (6)
  - VOMITING [None]
  - CLOSTRIDIAL INFECTION [None]
  - PYREXIA [None]
  - CHILLS [None]
  - DIARRHOEA [None]
  - EYELID OEDEMA [None]
